FAERS Safety Report 12391637 (Version 2)
Quarter: 2016Q3

REPORT INFORMATION
  Report Type: Spontaneous
  Country: JP (occurrence: JP)
  Receive Date: 20160521
  Receipt Date: 20160714
  Transmission Date: 20161109
  Serious: Yes (Death, Life-Threatening, Hospitalization, Other)
  Sender: FDA-Public Use
  Company Number: JP-009507513-0212USA01060

PATIENT
  Age: 57 Year
  Sex: Female
  Weight: 60 kg

DRUGS (6)
  1. FUTHAN [Suspect]
     Active Substance: NAFAMOSTAT MESYLATE
     Indication: DISSEMINATED INTRAVASCULAR COAGULATION
     Dosage: 240 MG, QD, PERPETUATION FOR 24 HOURS
     Route: 041
     Dates: start: 20021201, end: 20021207
  2. TIENAM FOR INTRAVENOUS DRIP INFUSION (KIT) [Suspect]
     Active Substance: CILASTATIN SODIUM\IMIPENEM
     Indication: PANCREATITIS
     Dosage: 1 G, QD, PERPETUATION FOR 24 HOURS
     Route: 013
     Dates: start: 20021123, end: 20021130
  3. TIENAM FOR INTRAVENOUS DRIP INFUSION (KIT) [Suspect]
     Active Substance: CILASTATIN SODIUM\IMIPENEM
     Indication: PROPHYLAXIS
     Dosage: 0.5 G, BID
     Route: 041
     Dates: start: 20021201, end: 20021201
  4. TIENAM FOR INTRAVENOUS DRIP INFUSION (KIT) [Suspect]
     Active Substance: CILASTATIN SODIUM\IMIPENEM
     Dosage: 0.5 G, TID
     Route: 041
     Dates: start: 20021202, end: 20021203
  5. TIENAM FOR INTRAVENOUS DRIP INFUSION (KIT) [Suspect]
     Active Substance: CILASTATIN SODIUM\IMIPENEM
     Dosage: 0.5 G, QID
     Route: 041
     Dates: start: 20021204, end: 20021207
  6. FUTHAN [Suspect]
     Active Substance: NAFAMOSTAT MESYLATE
     Indication: PANCREATITIS
     Dosage: 240 MG, QD, PERPETUATION FOR 24 HOURS
     Route: 013
     Dates: start: 20021123, end: 20021130

REACTIONS (13)
  - Nephrogenic diabetes insipidus [Recovered/Resolved]
  - Metastases to lymph nodes [Unknown]
  - Renal tubular necrosis [Recovered/Resolved]
  - Gallbladder cancer [Unknown]
  - Pancreatic pseudocyst [Unknown]
  - Choledochal cyst [Unknown]
  - Disseminated intravascular coagulation [Recovered/Resolved]
  - Abasia [Recovering/Resolving]
  - Hepatic failure [Recovered/Resolved]
  - Death [Fatal]
  - Cholangitis acute [Recovered/Resolved]
  - Nephropathy [Recovered/Resolved]
  - Acute respiratory distress syndrome [Recovered/Resolved]

NARRATIVE: CASE EVENT DATE: 200211
